FAERS Safety Report 8042307-5 (Version None)
Quarter: 2012Q1

REPORT INFORMATION
  Report Type: 
  Country: None (occurrence: None)
  Receive Date: 20120112
  Receipt Date: 20111228
  Transmission Date: 20120608
  Serious: Yes (Death)
  Sender: FDA-Public Use
  Company Number: US-UCBSA-049244

PATIENT
  Age: 32 Year
  Sex: Male

DRUGS (8)
  1. HYDROXYCHLOROQUINE SULFATE [Suspect]
     Route: 048
  2. LORAZEPAM [Suspect]
     Route: 048
  3. ALPRAZOLAM [Suspect]
     Route: 048
  4. DULOXETIME HYDROCHLORIDE [Suspect]
     Route: 048
  5. GABAPENTIN [Suspect]
     Route: 048
  6. ROPINIROLE [Suspect]
     Route: 048
  7. ZOLPIDEM [Suspect]
     Route: 048
  8. POTASSIUM CHLORIDE [Suspect]
     Route: 048

REACTIONS (1)
  - COMPLETED SUICIDE [None]
